FAERS Safety Report 4711505-8 (Version None)
Quarter: 2005Q3

REPORT INFORMATION
  Report Type: 
  Country: None (occurrence: None)
  Receive Date: 20050711
  Receipt Date: 20050711
  Transmission Date: 20060218
  Serious: Yes (Hospitalization)
  Sender: FDA-Public Use
  Company Number: None

PATIENT
  Sex: Male
  Weight: 158.759 kg

DRUGS (1)
  1. LEVAQUIN [Suspect]
     Indication: PNEUMONIA
     Dosage: ONE  DAILY  ORAL
     Route: 048
     Dates: start: 20050702, end: 20050703

REACTIONS (2)
  - LIBIDO INCREASED [None]
  - PSYCHOTIC DISORDER [None]
